FAERS Safety Report 14147198 (Version 1)
Quarter: 2017Q4

REPORT INFORMATION
  Report Type: Spontaneous
  Country: US (occurrence: US)
  Receive Date: 20171031
  Receipt Date: 20171031
  Transmission Date: 20180321
  Serious: No
  Sender: FDA-Public Use
  Company Number: US-BAYER-2017-209441

PATIENT
  Age: 35 Year
  Sex: Female
  Weight: 187 kg

DRUGS (1)
  1. ALEVE [Suspect]
     Active Substance: NAPROXEN SODIUM
     Indication: PAIN
     Dosage: 3 DF, UNK
     Route: 048
     Dates: end: 20171029

REACTIONS (3)
  - Drug effect delayed [Unknown]
  - Product use issue [Unknown]
  - Drug ineffective [Unknown]
